FAERS Safety Report 9398425 (Version 1)
Quarter: 2013Q3

REPORT INFORMATION
  Report Type: Spontaneous
  Country: FR (occurrence: None)
  Receive Date: 20130709
  Receipt Date: 20130709
  Transmission Date: 20140515
  Serious: Yes (Hospitalization, Other)
  Sender: FDA-Public Use
  Company Number: AUR-APL-2013-05737

PATIENT
  Age: 56 Year
  Sex: Male

DRUGS (2)
  1. BISOPROLOL (BISOPROLOL) [Suspect]
     Indication: CARDIAC FAILURE
     Route: 048
     Dates: start: 2009, end: 20130611
  2. EFFEXOR (VENLAFAXINE HYDROCHLORIDE) UNKNOWN [Suspect]
     Indication: PRODUCT USED FOR UNKNOWN INDICATION
     Route: 048
     Dates: start: 201208

REACTIONS (2)
  - Interstitial lung disease [None]
  - General physical health deterioration [None]
